FAERS Safety Report 22681815 (Version 4)
Quarter: 2023Q4

REPORT INFORMATION
  Report Type: Spontaneous
  Country: GB (occurrence: GB)
  Receive Date: 20230707
  Receipt Date: 20231010
  Transmission Date: 20240110
  Serious: Yes (Hospitalization, Other)
  Sender: FDA-Public Use
  Company Number: GB-JNJFOC-20230247362

PATIENT

DRUGS (3)
  1. DEGARELIX [Suspect]
     Active Substance: DEGARELIX
     Indication: Product used for unknown indication
     Dosage: UNK
     Route: 065
  2. APALUTAMIDE [Suspect]
     Active Substance: APALUTAMIDE
     Indication: Prostate cancer
     Dosage: 240 MG
     Route: 048
     Dates: start: 20230123, end: 20230920
  3. OMEPRAZOLE [Concomitant]
     Active Substance: OMEPRAZOLE
     Indication: Gastrointestinal disorder therapy
     Dosage: UNK
     Route: 048

REACTIONS (10)
  - Blood potassium increased [Not Recovered/Not Resolved]
  - Prostatic specific antigen increased [Not Recovered/Not Resolved]
  - Renal failure [Not Recovered/Not Resolved]
  - Malignant spinal cord compression [Unknown]
  - Thyroid disorder [Not Recovered/Not Resolved]
  - Blood alkaline phosphatase increased [Recovering/Resolving]
  - Influenza like illness [Recovered/Resolved]
  - Arthralgia [Recovering/Resolving]
  - Bone disorder [Unknown]
  - Gait inability [Unknown]

NARRATIVE: CASE EVENT DATE: 20230216
